FAERS Safety Report 7183610-0 (Version None)
Quarter: 2010Q4

REPORT INFORMATION
  Report Type: 
  Country: None (occurrence: None)
  Receive Date: 20101220
  Receipt Date: 20101220
  Transmission Date: 20110411
  Serious: Yes (Death, Other)
  Sender: FDA-Public Use
  Company Number: None

PATIENT
  Sex: Male
  Weight: 18.8 kg

DRUGS (2)
  1. VORINOSTAT [Suspect]
     Indication: NEUROBLASTOMA
     Dosage: 130 MG PO DAILY
     Route: 048
     Dates: start: 20100330, end: 20100412
  2. 131 I-MIBG [Suspect]
     Indication: NEUROBLASTOMA
     Dosage: 145 MCI IV ONCE
     Route: 042
     Dates: start: 20100401

REACTIONS (8)
  - ACUTE MYELOID LEUKAEMIA [None]
  - MALIGNANT NEOPLASM PROGRESSION [None]
  - MYELODYSPLASTIC SYNDROME [None]
  - NEUROBLASTOMA [None]
  - STEM CELL TRANSPLANT [None]
  - SURGICAL PROCEDURE REPEATED [None]
  - THROMBOCYTOPENIA [None]
  - TUMOUR COMPRESSION [None]
